FAERS Safety Report 9475624 (Version 1)
Quarter: 2013Q3

REPORT INFORMATION
  Report Type: Spontaneous
  Country: CH (occurrence: CH)
  Receive Date: 20130826
  Receipt Date: 20130826
  Transmission Date: 20140515
  Serious: Yes (Hospitalization, Other)
  Sender: FDA-Public Use
  Company Number: PHHY2013CH090836

PATIENT
  Age: 64 Year
  Sex: Female

DRUGS (16)
  1. ACLASTA [Suspect]
     Indication: OSTEOPOROSIS
     Dosage: 5 MG, UNK
     Route: 042
     Dates: start: 200905
  2. ACLASTA [Suspect]
     Dosage: 5 MG, UNK
     Route: 042
     Dates: start: 201104
  3. PROLIA [Suspect]
     Indication: OSTEOPOROSIS
     Dosage: 60 MG, 1 PER 6 MONTH
     Route: 058
     Dates: start: 201112, end: 20130301
  4. BONVIVA [Suspect]
     Indication: OSTEOPOROSIS
     Dosage: 3 MG, 1 PER 3 MONTHS
     Route: 042
     Dates: start: 200705, end: 200803
  5. FOSAMAX [Suspect]
     Indication: OSTEOPOROSIS
     Dosage: 70 MG, PER WEEK
     Route: 048
     Dates: start: 200503
  6. VITAMIN D [Concomitant]
     Indication: OSTEOPOROSIS
     Dosage: 300000 IU, SINGLE DOSE
     Dates: start: 201303
  7. CALCIMAGON D3 [Concomitant]
     Indication: OSTEOPOROSIS
  8. CLEXANE [Concomitant]
     Dosage: 40 MG, QD
  9. MOTILIUM//DOMPERIDONE [Concomitant]
     Dosage: 10 MG, TID
  10. NEXIUM//ESOMEPRAZOLE SODIUM [Concomitant]
     Dosage: 40 MG, QD
  11. GYNO TARDYFERON [Concomitant]
     Dosage: 1 DF, QD
  12. SUPRADYNE [Concomitant]
     Dosage: 1 DF, QD
  13. DAFALGAN [Concomitant]
     Dosage: 1 G, TID
  14. LIVIAL [Concomitant]
     Dosage: 2.5 MG, QD
     Dates: start: 2004
  15. OMEGA 3 [Concomitant]
     Dosage: 1 DF, QD
  16. SIRDALUD [Concomitant]
     Dosage: 2 MG, BID
     Route: 048

REACTIONS (1)
  - Impaired healing [Not Recovered/Not Resolved]
